FAERS Safety Report 12640555 (Version 1)
Quarter: 2016Q3

REPORT INFORMATION
  Report Type: Spontaneous
  Country: US (occurrence: US)
  Receive Date: 20160810
  Receipt Date: 20160810
  Transmission Date: 20161109
  Serious: No
  Sender: FDA-Public Use
  Company Number: US-WARNER CHILCOTT, LLC-1056157

PATIENT
  Sex: Female

DRUGS (2)
  1. ASACOL HD [Suspect]
     Active Substance: MESALAMINE
  2. DELZICOL [Suspect]
     Active Substance: MESALAMINE
     Route: 065

REACTIONS (6)
  - Feeling abnormal [Unknown]
  - Rectal haemorrhage [Unknown]
  - Frequent bowel movements [Unknown]
  - Vertigo [Unknown]
  - Eyelid rash [Unknown]
  - Colitis ulcerative [Unknown]
